FAERS Safety Report 4508887-9 (Version None)
Quarter: 2004Q4

REPORT INFORMATION
  Report Type: 
  Country: None (occurrence: None)
  Receive Date: 20041122
  Receipt Date: 20041122
  Transmission Date: 20050328
  Serious: Yes (Life-Threatening, Other)
  Sender: FDA-Public Use
  Company Number: None

PATIENT
  Age: 50 Year
  Sex: Female
  Weight: 91.173 kg

DRUGS (4)
  1. MERIDIA [Suspect]
     Indication: OBESITY
     Dosage: 1 CAP DAILY ORAL
     Route: 048
     Dates: start: 20040303, end: 20040422
  2. MERIDIA [Suspect]
     Indication: WEIGHT CONTROL
     Dosage: 1 CAP DAILY ORAL
     Route: 048
     Dates: start: 20040303, end: 20040422
  3. MERIDIA [Suspect]
     Indication: OBESITY
     Dosage: 1 CAP  DAILY ORAL
     Route: 048
     Dates: start: 20040503, end: 20040725
  4. MERIDIA [Suspect]
     Indication: WEIGHT CONTROL
     Dosage: 1 CAP  DAILY ORAL
     Route: 048
     Dates: start: 20040503, end: 20040725

REACTIONS (3)
  - BLOOD PRESSURE INCREASED [None]
  - FEAR [None]
  - HEART RATE INCREASED [None]
